FAERS Safety Report 8079163-5 (Version None)
Quarter: 2012Q1

REPORT INFORMATION
  Report Type: 
  Country: None (occurrence: None)
  Receive Date: 20120128
  Receipt Date: 20110729
  Transmission Date: 20120608
  Serious: No
  Sender: FDA-Public Use
  Company Number: US-ABBOTT-11P-163-0843199-00

PATIENT
  Sex: Male
  Weight: 68.1 kg

DRUGS (4)
  1. HUMIRA [Suspect]
     Route: 058
     Dates: start: 20110201, end: 20110201
  2. HUMIRA [Suspect]
     Route: 058
     Dates: start: 20110301
  3. HUMIRA [Suspect]
     Indication: CROHN'S DISEASE
     Route: 058
     Dates: start: 20110201, end: 20110201
  4. PENTASA [Concomitant]
     Indication: CROHN'S DISEASE

REACTIONS (4)
  - INFECTION [None]
  - RASH [None]
  - SKIN DISORDER [None]
  - WOUND [None]
